FAERS Safety Report 8690881 (Version 2)
Quarter: 2013Q4

REPORT INFORMATION
  Report Type: Spontaneous
  Country: US (occurrence: US)
  Receive Date: 20120730
  Receipt Date: 20131031
  Transmission Date: 20140711
  Serious: Yes (Hospitalization, Other)
  Sender: FDA-Public Use
  Company Number: US-MSD-1207USA010597

PATIENT
  Age: 57 Year
  Sex: Female

DRUGS (5)
  1. VYTORIN [Suspect]
     Route: 048
  2. WELLBUTRIN SR [Suspect]
     Dosage: 150 MG, QD
     Route: 048
  3. FOSAMAX [Suspect]
     Dosage: 70 MG, QD
     Route: 048
  4. STUDY VACCINATION (UNSPECIFIED) [Suspect]
     Dosage: UNK
     Route: 030
  5. CALCIUM (UNSPECIFIED) [Suspect]
     Dosage: 600 MG, QD
     Route: 048

REACTIONS (3)
  - Anastomotic leak [Unknown]
  - Diverticulitis [Unknown]
  - Diarrhoea [Unknown]
